FAERS Safety Report 16032458 (Version 1)
Quarter: 2019Q1

REPORT INFORMATION
  Report Type: Report from Study
  Country: UG (occurrence: UG)
  Receive Date: 20190304
  Receipt Date: 20190304
  Transmission Date: 20190418
  Serious: Yes (Life-Threatening)
  Sender: FDA-Public Use
  Company Number: PHHO2018UG009319

PATIENT
  Age: 12 Year
  Sex: Female
  Weight: 39 kg

DRUGS (2)
  1. KAF156 [Suspect]
     Active Substance: GANAPLACIDE
     Indication: PLASMODIUM FALCIPARUM INFECTION
     Dosage: 200 MG, QD
     Route: 048
     Dates: start: 20180705
  2. LUMEFANTRINE [Suspect]
     Active Substance: LUMEFANTRINE
     Indication: PLASMODIUM FALCIPARUM INFECTION
     Dosage: 200 MG, UNK
     Route: 048
     Dates: start: 20180705

REACTIONS (1)
  - Blood alkaline phosphatase increased [Recovered/Resolved]

NARRATIVE: CASE EVENT DATE: 20180801
